FAERS Safety Report 13160590 (Version 1)
Quarter: 2017Q1

REPORT INFORMATION
  Report Type: Spontaneous
  Country: GB (occurrence: GB)
  Receive Date: 20170129
  Receipt Date: 20170129
  Transmission Date: 20170428
  Serious: Yes (Hospitalization, Other)
  Sender: FDA-Public Use
  Company Number: GB-MYLANLABS-2017M1004822

PATIENT

DRUGS (1)
  1. CLOZARIL [Suspect]
     Active Substance: CLOZAPINE
     Indication: SCHIZOPHRENIA
     Dosage: 300 MG, QD
     Route: 048
     Dates: start: 20161228, end: 20170124

REACTIONS (7)
  - Troponin increased [Unknown]
  - Tachycardia [Unknown]
  - Myocarditis [Unknown]
  - Blood creatine phosphokinase increased [Unknown]
  - Influenza like illness [Unknown]
  - Body temperature increased [Unknown]
  - C-reactive protein increased [Unknown]
